FAERS Safety Report 7821822-0 (Version None)
Quarter: 2011Q4

REPORT INFORMATION
  Report Type: 
  Country: None (occurrence: None)
  Receive Date: 20111018
  Receipt Date: 20101105
  Transmission Date: 20120403
  Serious: No
  Sender: FDA-Public Use
  Company Number: US-ASTRAZENECA-2010SE52619

PATIENT
  Age: 73 Year
  Sex: Female

DRUGS (2)
  1. ADVAIR DISKUS 100/50 [Concomitant]
  2. SYMBICORT [Suspect]
     Indication: CHRONIC OBSTRUCTIVE PULMONARY DISEASE
     Route: 055

REACTIONS (4)
  - TREATMENT NONCOMPLIANCE [None]
  - THROAT IRRITATION [None]
  - CANDIDIASIS [None]
  - ORAL PRURITUS [None]
